FAERS Safety Report 7633006-X (Version None)
Quarter: 2011Q3

REPORT INFORMATION
  Report Type: 
  Country: None (occurrence: None)
  Receive Date: 20110725
  Receipt Date: 20110720
  Transmission Date: 20111222
  Serious: Yes (Hospitalization)
  Sender: FDA-Public Use
  Company Number: PHHY2011GR65032

PATIENT
  Age: 47 Year
  Sex: Male

DRUGS (1)
  1. EXTAVIA [Suspect]
     Dosage: UNK

REACTIONS (1)
  - MYOCARDIAL INFARCTION [None]
